FAERS Safety Report 9892851 (Version 1)
Quarter: 2014Q1

REPORT INFORMATION
  Report Type: Report from Study
  Country: US (occurrence: US)
  Receive Date: 20140213
  Receipt Date: 20140213
  Transmission Date: 20141002
  Serious: Yes (Other)
  Sender: FDA-Public Use
  Company Number: US-ROCHE-1329455

PATIENT
  Age: 69 Year
  Sex: Male
  Weight: 72 kg

DRUGS (18)
  1. AVASTIN [Suspect]
     Indication: LUNG NEOPLASM MALIGNANT
     Route: 042
  2. NEULASTA [Concomitant]
     Route: 058
  3. ALOXI [Concomitant]
     Route: 040
  4. DECADRON [Concomitant]
     Route: 042
  5. DECADRON [Concomitant]
     Dosage: 4MG ORAL TWICE A DAY BEFORE, D DAY + NEXT DAY AFTER CHEMO
     Route: 048
  6. CARBOPLATIN [Concomitant]
     Route: 042
  7. ALIMTA [Concomitant]
     Route: 042
  8. CALCIUM CARBONATE [Concomitant]
     Route: 048
  9. VITAMIN D3 [Concomitant]
     Route: 048
  10. PROCHLORPERAZINE [Concomitant]
     Dosage: 1 EVERY 6 HOURS AS REQUIRED
     Route: 048
  11. VITAMIN B12 [Concomitant]
     Dosage: THEN EVERY THIRD CYCLE
     Route: 030
  12. FOLIC ACID [Concomitant]
     Route: 048
  13. BENZONATATE [Concomitant]
     Indication: COUGH
     Dosage: THRICE A DAY AS REQUIRED
     Route: 048
  14. DIAMICRON [Concomitant]
     Indication: DIABETES MELLITUS
     Route: 065
  15. SIMVASTATIN [Concomitant]
     Dosage: AT BEDTIME
     Route: 048
  16. RAMIPRIL [Concomitant]
     Route: 048
  17. TARCEVA [Concomitant]
     Route: 048
  18. ZOFRAN [Concomitant]
     Route: 042

REACTIONS (11)
  - Epistaxis [Unknown]
  - Constipation [Unknown]
  - Nausea [Unknown]
  - Productive cough [Unknown]
  - Fatigue [Unknown]
  - Vomiting [Unknown]
  - Nail discolouration [Unknown]
  - Dyspepsia [Unknown]
  - Rash [Unknown]
  - Blood glucose increased [Unknown]
  - Neutropenia [Unknown]
